FAERS Safety Report 6752535-4 (Version None)
Quarter: 2010Q2

REPORT INFORMATION
  Report Type: 
  Country: None (occurrence: None)
  Receive Date: 20100528
  Receipt Date: 20100520
  Transmission Date: 20101027
  Serious: Yes (Other)
  Sender: FDA-Public Use
  Company Number: CIP10001124

PATIENT
  Age: 73 Year
  Sex: Female

DRUGS (9)
  1. ACTONEL [Suspect]
     Dosage: 35 MG ONCE WEEKLY, ORAL
     Route: 048
     Dates: start: 20040101, end: 20090701
  2. CALCIUM (CALCIUM) [Concomitant]
  3. ERGOCALCIFEROL [Concomitant]
  4. VIACTIV /00751501/ (CALCIUM) [Concomitant]
  5. OMEGA 3 /00931501/ (DOCOSAHEXANOIC ACID, EICOSPENTAENOIC ACID) [Concomitant]
  6. CYANOCOBALAMIN [Concomitant]
  7. ESTER C /00008001/ (ASCORBIC ACID) [Concomitant]
  8. CO Q10 (UBIDECARENONE) [Concomitant]
  9. BIOTIN (BIOTIN) [Concomitant]

REACTIONS (1)
  - ATRIAL FIBRILLATION [None]
